FAERS Safety Report 8422700-9 (Version None)
Quarter: 2012Q2

REPORT INFORMATION
  Report Type: 
  Country: None (occurrence: None)
  Receive Date: 20120608
  Receipt Date: 20120605
  Transmission Date: 20120825
  Serious: No
  Sender: FDA-Public Use
  Company Number: US-BAYER-2012-056715

PATIENT

DRUGS (3)
  1. MOTRIN [Suspect]
     Dosage: 2 DF AT 1400 AND 4 DF AT 2200
     Dates: start: 20120604
  2. VALIUM [Suspect]
     Dosage: .5 DF, UNK
     Dates: start: 20120605
  3. ALEVE (CAPLET) [Suspect]
     Dosage: 2 DF, UNK

REACTIONS (2)
  - HEADACHE [None]
  - DRUG INEFFECTIVE [None]
